FAERS Safety Report 5578262-7 (Version None)
Quarter: 2007Q4

REPORT INFORMATION
  Report Type: 
  Country: None (occurrence: None)
  Receive Date: 20071231
  Receipt Date: 20071220
  Transmission Date: 20080405
  Serious: Yes (Other)
  Sender: FDA-Public Use
  Company Number: GR-PFIZER INC-2007107493

PATIENT
  Sex: Female

DRUGS (1)
  1. GEODON [Suspect]

REACTIONS (4)
  - CARDIAC FAILURE [None]
  - MEDICATION ERROR [None]
  - RENAL FAILURE [None]
  - WRONG DRUG ADMINISTERED [None]
